FAERS Safety Report 9440760 (Version 5)
Quarter: 2014Q2

REPORT INFORMATION
  Report Type: Spontaneous
  Country: JP (occurrence: JP)
  Receive Date: 20130805
  Receipt Date: 20140404
  Transmission Date: 20141212
  Serious: Yes (Hospitalization)
  Sender: FDA-Public Use
  Company Number: JP-JNJFOC-20130800145

PATIENT
  Age: 63 Year
  Sex: Male
  Weight: 57 kg

DRUGS (2)
  1. REMICADE [Suspect]
     Indication: PSORIASIS
     Route: 042
     Dates: start: 20130716
  2. NEORAL [Concomitant]
     Indication: PSORIASIS
     Route: 048
     Dates: end: 20130715

REACTIONS (4)
  - Eosinophilic pneumonia [Recovered/Resolved]
  - Staphylococcal infection [Unknown]
  - Pustular psoriasis [Unknown]
  - Psoriatic arthropathy [Unknown]
